FAERS Safety Report 22609234 (Version 1)
Quarter: 2023Q2

REPORT INFORMATION
  Report Type: Spontaneous
  Country: US (occurrence: US)
  Receive Date: 20230616
  Receipt Date: 20230616
  Transmission Date: 20230722
  Serious: No
  Sender: FDA-Public Use
  Company Number: US-BRISTOL-MYERS SQUIBB COMPANY-2023-085234

PATIENT
  Age: 81 Year
  Sex: Female

DRUGS (1)
  1. REVLIMID [Suspect]
     Active Substance: LENALIDOMIDE
     Indication: Plasma cell myeloma
     Dosage: FREQUENCY: FREQUENCY: TAKE 1 CAPSULE (5 MG) BY MOUTH IN THE MORNING FOR 21 DAYS, THEN OFF FOR 7 DAYS
     Route: 048
     Dates: start: 202105

REACTIONS (1)
  - Full blood count decreased [Unknown]
